FAERS Safety Report 23447075 (Version 3)
Quarter: 2024Q1

REPORT INFORMATION
  Report Type: Spontaneous
  Country: JP (occurrence: JP)
  Receive Date: 20240126
  Receipt Date: 20240304
  Transmission Date: 20240409
  Serious: Yes (Hospitalization, Other)
  Sender: FDA-Public Use
  Company Number: JP-NOVOPROD-1156780

PATIENT
  Age: 56 Year
  Sex: Female

DRUGS (3)
  1. RYZODEG 70/30 [Suspect]
     Active Substance: INSULIN ASPART\INSULIN DEGLUDEC
     Indication: Type 2 diabetes mellitus
     Dosage: 36 IU, QD
     Route: 058
  2. RYZODEG 70/30 [Suspect]
     Active Substance: INSULIN ASPART\INSULIN DEGLUDEC
     Dosage: 900 UNITS
     Route: 058
  3. PIROXICAM [Concomitant]
     Active Substance: PIROXICAM
     Indication: Psychotic disorder
     Dosage: 10 MG, QD
     Route: 048

REACTIONS (3)
  - Suicide attempt [Unknown]
  - Hypoglycaemic encephalopathy [Recovered/Resolved]
  - Intentional overdose [Unknown]
